FAERS Safety Report 5679199-5 (Version None)
Quarter: 2008Q1

REPORT INFORMATION
  Report Type: 
  Country: None (occurrence: None)
  Receive Date: 20080325
  Receipt Date: 20080320
  Transmission Date: 20080703
  Serious: Yes (Death, Other)
  Sender: FDA-Public Use
  Company Number: US-ASTRAZENECA-2006UW21524

PATIENT
  Age: 78 Year
  Sex: Male
  Weight: 63.6 kg

DRUGS (1)
  1. SEROQUEL [Suspect]
     Indication: ANXIETY
     Route: 048
     Dates: start: 20030101, end: 20060909

REACTIONS (6)
  - BLOOD TRIGLYCERIDES INCREASED [None]
  - CONVULSION [None]
  - DEATH [None]
  - DEMENTIA ALZHEIMER'S TYPE [None]
  - DIABETES MELLITUS [None]
  - HYPERLIPIDAEMIA [None]
